FAERS Safety Report 8402613 (Version 6)
Quarter: 2013Q4

REPORT INFORMATION
  Report Type: Report from Study
  Country: TW (occurrence: TW)
  Receive Date: 20120213
  Receipt Date: 20131003
  Transmission Date: 20140711
  Serious: Yes (Death, Hospitalization, Other)
  Sender: FDA-Public Use
  Company Number: TW-CELGENEUS-153-21880-12020671

PATIENT
  Age: 66 Year
  Sex: Female
  Weight: 52.1 kg

DRUGS (20)
  1. REVLIMID [Suspect]
     Indication: PLASMA CELL MYELOMA
     Dosage: 10 MILLIGRAM
     Route: 048
     Dates: start: 20110422
  2. REVLIMID [Suspect]
     Dosage: 10 MILLIGRAM
     Route: 048
     Dates: start: 20120203, end: 20120210
  3. REVLIMID [Suspect]
     Route: 048
     Dates: start: 20120302
  4. REVLIMID [Suspect]
     Dosage: 10 MILLIGRAM
     Route: 048
     Dates: start: 20120504, end: 20120524
  5. DEXAMETHASONE [Suspect]
     Indication: PLASMA CELL MYELOMA
     Route: 065
     Dates: start: 20110422
  6. DEXAMETHASONE [Suspect]
     Dosage: 2.8571 MILLIGRAM
     Route: 065
     Dates: start: 20120203, end: 20120210
  7. DEXAMETHASONE [Suspect]
     Route: 065
     Dates: start: 20120202
  8. DEXAMETHASONE [Suspect]
     Dosage: 2.8571 MILLIGRAM
     Route: 065
     Dates: start: 20120504, end: 20120509
  9. AUGMENTIN [Concomitant]
     Indication: PRODUCT USED FOR UNKNOWN INDICATION
     Dosage: 2 TABLET
     Route: 048
     Dates: start: 20110124, end: 20110131
  10. AUGMENTIN [Concomitant]
     Dosage: 2 TABLET
     Route: 048
     Dates: start: 20110221, end: 20110228
  11. ULTRACET [Concomitant]
     Indication: PRODUCT USED FOR UNKNOWN INDICATION
     Dosage: 1 TABLET
     Route: 048
  12. TRAMAL [Concomitant]
     Indication: PRODUCT USED FOR UNKNOWN INDICATION
     Dosage: 1 TAB
     Route: 048
     Dates: start: 20101231, end: 20110121
  13. TRAMAL [Concomitant]
     Dosage: 1 TAB
     Route: 048
     Dates: start: 20110124, end: 20110321
  14. PROCTOSEDYL [Concomitant]
     Indication: PRODUCT USED FOR UNKNOWN INDICATION
     Route: 065
  15. MEGEST [Concomitant]
     Indication: PRODUCT USED FOR UNKNOWN INDICATION
     Dosage: 40MG/1ML 120ML/BTL 2ML
     Route: 048
  16. EURODIN [Concomitant]
     Indication: INSOMNIA
     Dosage: 2 MILLIGRAM
     Route: 048
     Dates: start: 20120219, end: 20120224
  17. MUCOSOLVAN [Concomitant]
     Indication: PRODUCTIVE COUGH
     Route: 048
     Dates: start: 20120217, end: 20120224
  18. MGO [Concomitant]
     Indication: CONSTIPATION
     Route: 048
     Dates: start: 20120217, end: 201202
  19. TRANDATE [Concomitant]
     Indication: HYPERTENSION
     Dosage: 25MG/5ML/AMP 2MG
     Route: 041
     Dates: start: 20120217, end: 20120221
  20. ENDOXAN [Interacting]
     Indication: PLASMA CELL MYELOMA
     Dosage: 50 MILLIGRAM
     Route: 048
     Dates: start: 20120607

REACTIONS (1)
  - Squamous cell carcinoma of the tongue [Fatal]
